FAERS Safety Report 8617312-8 (Version None)
Quarter: 2012Q3

REPORT INFORMATION
  Report Type: 
  Country: None (occurrence: None)
  Receive Date: 20120823
  Receipt Date: 20120810
  Transmission Date: 20120928
  Serious: No
  Sender: FDA-Public Use
  Company Number: US-ASTRAZENECA-2011SE55739

PATIENT
  Age: 67 Year
  Sex: Female

DRUGS (14)
  1. ALBUTEROL [Concomitant]
     Dosage: AS NEEDED
  2. ALBUTEROL [Concomitant]
     Dosage: 2 PUFFS FOUR TIMES DAILY IF NEEDED
  3. BENICAR [Concomitant]
  4. CARISOPRODOL [Concomitant]
  5. LORAZEPAM [Concomitant]
  6. NAPROXEN [Concomitant]
  7. PREMARIN [Concomitant]
  8. CYCLOBENZAPRINE [Concomitant]
  9. PERFOROMIST TREATMENT [Concomitant]
     Dosage: TWO TIMES  DAY
  10. ATENOLOL [Concomitant]
     Route: 048
  11. OMEPRAZOLE [Concomitant]
  12. SYMBICORT MDI [Concomitant]
     Dosage: 160/4.5 MG, TWO PUFFS TWO TIMES A DAY
     Route: 055
  13. ALENDRONATE SOD [Concomitant]
  14. LISINOPRIL [Suspect]
     Route: 048

REACTIONS (3)
  - OEDEMA MOUTH [None]
  - SWOLLEN TONGUE [None]
  - DRUG HYPERSENSITIVITY [None]
